FAERS Safety Report 9566939 (Version 1)
Quarter: 2013Q3

REPORT INFORMATION
  Report Type: Spontaneous
  Country: US (occurrence: US)
  Receive Date: 20130930
  Receipt Date: 20130930
  Transmission Date: 20140515
  Serious: No
  Sender: FDA-Public Use
  Company Number: US-AMGEN-USASP2012061155

PATIENT
  Sex: Female
  Weight: 63.49 kg

DRUGS (5)
  1. ENBREL [Suspect]
     Indication: PRODUCT USED FOR UNKNOWN INDICATION
     Dosage: 50 MG, QWK
     Route: 058
  2. METHOTREXATE [Concomitant]
     Dosage: 2.5 MG, UNK
  3. FOLIC ACID [Concomitant]
     Dosage: 1 MG, UNK
  4. DICLOFENAC [Concomitant]
     Dosage: 25 MG, UNK
  5. ALESSE [Concomitant]
     Dosage: 28 UNK, UNK

REACTIONS (1)
  - Drug ineffective [Unknown]
